FAERS Safety Report 12468812 (Version 1)
Quarter: 2016Q2

REPORT INFORMATION
  Report Type: Spontaneous
  Country: IT (occurrence: IT)
  Receive Date: 20160615
  Receipt Date: 20160615
  Transmission Date: 20160815
  Serious: Yes (Hospitalization, Other)
  Sender: FDA-Public Use
  Company Number: IT-WATSON-2016-12083

PATIENT
  Age: 5 Year

DRUGS (1)
  1. TAMOXIFEN CITRATE (UNKNOWN) [Suspect]
     Active Substance: TAMOXIFEN CITRATE
     Indication: ACCIDENTAL EXPOSURE TO PRODUCT BY CHILD
     Dosage: 20 MG, UNKNOWN
     Route: 048

REACTIONS (2)
  - Electrocardiogram QT prolonged [Recovered/Resolved]
  - Accidental exposure to product by child [Recovered/Resolved]
